FAERS Safety Report 18458869 (Version 1)
Quarter: 2020Q4

REPORT INFORMATION
  Report Type: Spontaneous
  Country: ES (occurrence: ES)
  Receive Date: 20201103
  Receipt Date: 20201103
  Transmission Date: 20210114
  Serious: Yes (Other)
  Sender: FDA-Public Use
  Company Number: ES-ASTRAZENECA-2020SF40267

PATIENT
  Age: 46 Year
  Sex: Male

DRUGS (9)
  1. ALOGLIPTIN. [Concomitant]
     Active Substance: ALOGLIPTIN
     Indication: TYPE 2 DIABETES MELLITUS
     Dosage: 12.5 MILLIGRAMS, 24 - EVERY HOUR
     Route: 048
     Dates: start: 20190717
  2. DAPAGLIFLOZIN. [Suspect]
     Active Substance: DAPAGLIFLOZIN
     Indication: TYPE 2 DIABETES MELLITUS
     Dosage: 10 MILLIGRAMS, 24 - EVERY HOUR
     Route: 048
     Dates: start: 20200715, end: 20201015
  3. DIGOXIN. [Concomitant]
     Active Substance: DIGOXIN
     Indication: CARDIAC FAILURE
     Dosage: KERN PHARMA, 0.25 MILLIGRAMS, 24 - EVERY HOUR
     Route: 048
     Dates: start: 20110319
  4. SIMVASTATIN. [Concomitant]
     Active Substance: SIMVASTATIN
     Indication: CARDIAC FAILURE
     Dosage: 20 MILLIGRAMS, 24 - EVERY HOUR
     Route: 048
     Dates: start: 20130227
  5. FUROSEMIDE. [Concomitant]
     Active Substance: FUROSEMIDE
     Indication: CARDIAC DISORDER
     Dosage: 40 MILLIGRAMS, 24 - EVERY HOUR
     Route: 048
     Dates: start: 20140923
  6. CARVEDILOL. [Concomitant]
     Active Substance: CARVEDILOL
     Indication: CARDIAC DISORDER
     Dosage: 25 MILLIGRAMS, 12 - EVERY HOUR
     Route: 048
     Dates: start: 20180926
  7. EPLERENONE. [Concomitant]
     Active Substance: EPLERENONE
     Indication: CARDIAC DISORDER
     Dosage: 50 MILLIGRAMS, 24 - EVERY HOUR
     Route: 048
     Dates: start: 20161230
  8. OMEPRAZOLE. [Concomitant]
     Active Substance: OMEPRAZOLE
     Indication: GASTRITIS
     Dosage: 20 MILLIGRAMS, 24 - EVERY HOUR
     Route: 048
     Dates: start: 20170207
  9. ENTRESTO [Concomitant]
     Active Substance: SACUBITRIL\VALSARTAN
     Indication: CARDIAC DISORDER
     Dosage: 97 MG/103 MG, 1 DOSAGE FORM, 12 - EVERY HOUR
     Route: 048
     Dates: start: 20161230

REACTIONS (4)
  - Abdominal pain [Recovered/Resolved]
  - Spinal pain [Recovered/Resolved]
  - Penile discomfort [Recovered/Resolved]
  - Weight decreased [Recovered/Resolved]

NARRATIVE: CASE EVENT DATE: 20201012
